FAERS Safety Report 12931531 (Version 1)
Quarter: 2016Q4

REPORT INFORMATION
  Report Type: Spontaneous
  Country: JP (occurrence: JP)
  Receive Date: 20161110
  Receipt Date: 20161110
  Transmission Date: 20170207
  Serious: Yes (Other)
  Sender: FDA-Public Use
  Company Number: JP-AMGEN-JPNSP2016157745

PATIENT
  Age: 76 Year
  Sex: Female

DRUGS (1)
  1. PRALIA [Suspect]
     Active Substance: DENOSUMAB
     Indication: OSTEOPOROSIS
     Dosage: UNK
     Route: 058

REACTIONS (4)
  - Pruritus [Unknown]
  - Solar dermatitis [Unknown]
  - Eczema [Unknown]
  - Tongue neoplasm [Unknown]

NARRATIVE: CASE EVENT DATE: 20151221
